FAERS Safety Report 8541112-0 (Version None)
Quarter: 2012Q3

REPORT INFORMATION
  Report Type: 
  Country: None (occurrence: None)
  Receive Date: 20120726
  Receipt Date: 20110822
  Transmission Date: 20120928
  Serious: No
  Sender: FDA-Public Use
  Company Number: US-ASTRAZENECA-2011SE50151

PATIENT
  Age: 56 Year
  Sex: Female

DRUGS (8)
  1. SEROQUEL XR [Suspect]
     Indication: SLEEP DISORDER
     Route: 048
     Dates: start: 20100101
  2. OXYCODONE HCL [Concomitant]
  3. PHENERGAN HCL [Concomitant]
  4. SEROQUEL XR [Suspect]
     Indication: BIPOLAR I DISORDER
     Route: 048
     Dates: start: 20100101
  5. NAPROSYN [Concomitant]
  6. CYMBALTA [Concomitant]
  7. VALIUM [Concomitant]
  8. SOMA [Concomitant]

REACTIONS (3)
  - INSOMNIA [None]
  - DRUG DOSE OMISSION [None]
  - CONDITION AGGRAVATED [None]
